FAERS Safety Report 24658692 (Version 1)
Quarter: 2024Q4

REPORT INFORMATION
  Report Type: Spontaneous
  Country: US (occurrence: None)
  Receive Date: 20241122
  Receipt Date: 20241122
  Transmission Date: 20250114
  Serious: Yes (Hospitalization)
  Sender: Public
  Company Number: None

PATIENT
  Sex: Male

DRUGS (2)
  1. OPSUMIT [Suspect]
     Active Substance: MACITENTAN
     Indication: Pulmonary arterial hypertension
     Dosage: 10 MG DAILY PO
     Route: 048
     Dates: start: 202406
  2. UPTRAVI [Suspect]
     Active Substance: SELEXIPAG

REACTIONS (2)
  - Chronic obstructive pulmonary disease [None]
  - Pneumonia [None]
